FAERS Safety Report 7396771-5 (Version None)
Quarter: 2011Q2

REPORT INFORMATION
  Report Type: 
  Country: None (occurrence: None)
  Receive Date: 20110406
  Receipt Date: 20110325
  Transmission Date: 20111010
  Serious: Yes (Death)
  Sender: FDA-Public Use
  Company Number: JP-ROCHE-769374

PATIENT
  Age: 76 Year
  Sex: Male

DRUGS (5)
  1. DENOSINE IV [Suspect]
     Dosage: HALF DOSE ADMINISTERED
     Route: 042
     Dates: start: 20110312
  2. AMBISOME [Suspect]
     Dosage: ROUTE: PARENTERAL
     Route: 050
     Dates: start: 20110224
  3. DENOSINE IV [Suspect]
     Dosage: DOSE: 1.2 VIALS/ DAY
     Route: 042
     Dates: start: 20110307
  4. AMBISOME [Suspect]
     Dosage: HALF DOSE ADMINISTERED
     Route: 050
     Dates: start: 20110312
  5. TEICOPLANIN [Suspect]
     Route: 050

REACTIONS (2)
  - RENAL DISORDER [None]
  - PLATELET COUNT DECREASED [None]
